FAERS Safety Report 5140022-9 (Version None)
Quarter: 2006Q4

REPORT INFORMATION
  Report Type: 
  Country: None (occurrence: None)
  Receive Date: 20061025
  Receipt Date: 20061016
  Transmission Date: 20070319
  Serious: Yes (Other)
  Sender: FDA-Public Use
  Company Number: 2006126398

PATIENT
  Age: 62 Year
  Sex: Female
  Weight: 95.2554 kg

DRUGS (5)
  1. LIPITOR [Suspect]
     Indication: BLOOD CHOLESTEROL
     Dates: start: 20060901, end: 20060901
  2. BYETTA [Suspect]
     Indication: DIABETES MELLITUS NON-INSULIN-DEPENDENT
     Dosage: 5 MCG (2 IN 1 D) , SUBCUTANEOUS
     Route: 058
     Dates: start: 20051201
  3. ZETIA [Suspect]
     Indication: BLOOD CHOLESTEROL
     Dates: start: 20060906, end: 20060910
  4. METFORMIN [Concomitant]
  5. AMARYL [Concomitant]

REACTIONS (7)
  - BLISTER [None]
  - BLOOD TRIGLYCERIDES INCREASED [None]
  - MUSCLE SPASMS [None]
  - NEURALGIA [None]
  - PRURITUS [None]
  - SEASONAL ALLERGY [None]
  - WEIGHT DECREASED [None]
